FAERS Safety Report 7098454-8 (Version None)
Quarter: 2010Q4

REPORT INFORMATION
  Report Type: 
  Country: None (occurrence: None)
  Receive Date: 20101110
  Receipt Date: 20101110
  Transmission Date: 20110411
  Serious: Yes (Other)
  Sender: FDA-Public Use
  Company Number: None

PATIENT
  Age: 67 Year
  Sex: Female
  Weight: 72.5755 kg

DRUGS (1)
  1. KLONOPIN [Suspect]
     Indication: NERVOUS SYSTEM DISORDER
     Dosage: 1 MG. TWICE A DAY BUCCAL
     Route: 002
     Dates: start: 20060101, end: 20101010

REACTIONS (6)
  - BLOOD PRESSURE INCREASED [None]
  - MALAISE [None]
  - NAUSEA [None]
  - NIGHTMARE [None]
  - PRODUCT QUALITY ISSUE [None]
  - SOMNOLENCE [None]
